FAERS Safety Report 11655340 (Version 3)
Quarter: 2015Q4

REPORT INFORMATION
  Report Type: Spontaneous
  Country: US (occurrence: US)
  Receive Date: 20151023
  Receipt Date: 20151024
  Transmission Date: 20160304
  Serious: No
  Sender: FDA-Public Use
  Company Number: US-BIOGENIDEC-2015BI142593

PATIENT
  Sex: Female

DRUGS (1)
  1. TECFIDERA [Suspect]
     Active Substance: DIMETHYL FUMARATE
     Indication: PRODUCT USED FOR UNKNOWN INDICATION

REACTIONS (11)
  - Pain in extremity [Unknown]
  - Dizziness [Unknown]
  - Flushing [Unknown]
  - Headache [Unknown]
  - Depression [Unknown]
  - Muscular weakness [Unknown]
  - Palpitations [Unknown]
  - Pruritus [Unknown]
  - Anxiety [Unknown]
  - Muscle spasms [Unknown]
  - Balance disorder [Unknown]
